FAERS Safety Report 24153917 (Version 1)
Quarter: 2024Q3

REPORT INFORMATION
  Report Type: Other
  Country: GB (occurrence: GB)
  Receive Date: 20240730
  Receipt Date: 20240730
  Transmission Date: 20241016
  Serious: Yes (Other)
  Sender: GLENMARK
  Company Number: None

PATIENT

DRUGS (1)
  1. EZETIMIBE [Suspect]
     Active Substance: EZETIMIBE
     Indication: Product used for unknown indication
     Dosage: 10 MILLIGRAM, OD, 10 MG ONE DAILY
     Route: 065
     Dates: start: 20240423, end: 20240502

REACTIONS (4)
  - Fatigue [Not Recovered/Not Resolved]
  - Medication error [Unknown]
  - Loss of personal independence in daily activities [Unknown]
  - Social problem [Unknown]

NARRATIVE: CASE EVENT DATE: 20240430
